FAERS Safety Report 9549976 (Version 3)
Quarter: 2013Q4

REPORT INFORMATION
  Report Type: Spontaneous
  Country: IT (occurrence: IT)
  Receive Date: 20130924
  Receipt Date: 20131128
  Transmission Date: 20140711
  Serious: Yes (Death, Hospitalization, Other)
  Sender: FDA-Public Use
  Company Number: IT-BRISTOL-MYERS SQUIBB COMPANY-19457217

PATIENT
  Age: 55 Year
  Sex: Female
  Weight: 50 kg

DRUGS (1)
  1. YERVOY [Suspect]
     Indication: METASTATIC MALIGNANT MELANOMA
     Dosage: 5 MG/ML
     Route: 042
     Dates: start: 20130709, end: 20130820

REACTIONS (6)
  - Malignant neoplasm progression [Fatal]
  - Peripheral sensorimotor neuropathy [Not Recovered/Not Resolved]
  - Meningism [Not Recovered/Not Resolved]
  - Cranial nerve disorder [Not Recovered/Not Resolved]
  - Deafness [Unknown]
  - Diplopia [Unknown]
